FAERS Safety Report 6554405-3 (Version None)
Quarter: 2010Q1

REPORT INFORMATION
  Report Type: 
  Country: None (occurrence: None)
  Receive Date: 20100127
  Receipt Date: 20100104
  Transmission Date: 20100710
  Serious: Yes (Other)
  Sender: FDA-Public Use
  Company Number: CHPA2010US00544

PATIENT
  Age: 75 Year
  Sex: Female

DRUGS (4)
  1. PREVACID 24 HR [Suspect]
     Indication: CHEST PAIN
     Dosage: 15 MG, QD
     Route: 048
     Dates: start: 20090101, end: 20090101
  2. PREVACID 24 HR [Suspect]
     Indication: BACK PAIN
     Dosage: 30 MG, QD
     Route: 048
     Dates: start: 20090101, end: 20090101
  3. PREVACID 24 HR [Suspect]
     Indication: PAIN IN JAW
     Dosage: 15 MG, QD
     Route: 048
     Dates: start: 20090101
  4. PREVACID 24 HR [Suspect]
     Indication: SWELLING

REACTIONS (4)
  - BLOOD PRESSURE INCREASED [None]
  - INTENTIONAL DRUG MISUSE [None]
  - OFF LABEL USE [None]
  - OVERDOSE [None]
